FAERS Safety Report 6259382-0 (Version None)
Quarter: 2009Q3

REPORT INFORMATION
  Report Type: 
  Country: None (occurrence: None)
  Receive Date: 20090706
  Receipt Date: 20090630
  Transmission Date: 20100115
  Serious: Yes (Death, Other)
  Sender: FDA-Public Use
  Company Number: 2009SP014315

PATIENT
  Age: 44 Year
  Sex: Female

DRUGS (1)
  1. TEMOZOLOMIDE [Suspect]
     Indication: ASTROCYTOMA, LOW GRADE

REACTIONS (4)
  - BONE MARROW TRANSPLANT [None]
  - COMPLICATIONS OF BONE MARROW TRANSPLANT [None]
  - MYELODYSPLASTIC SYNDROME [None]
  - SEPSIS [None]
